FAERS Safety Report 10244957 (Version 1)
Quarter: 2014Q2

REPORT INFORMATION
  Report Type: Spontaneous
  Country: US (occurrence: US)
  Receive Date: 20140618
  Receipt Date: 20140618
  Transmission Date: 20141212
  Serious: No
  Sender: FDA-Public Use
  Company Number: US-GALDERMA-US14000913

PATIENT
  Age: 58 Year
  Sex: Male

DRUGS (6)
  1. MIRVASO (BRIMONIDINE) TOPICAL GEL, 0.33% [Suspect]
     Indication: ROSACEA
     Dosage: 0.33%
     Route: 061
     Dates: start: 20140226, end: 20140306
  2. ORACEA (DOXYCYCLINE, USP) CAPSULES 40 MG [Concomitant]
     Indication: ROSACEA
     Dosage: 40 MG
     Route: 048
     Dates: start: 2011
  3. METROGEL  (METRONIDAZOLE) TOPICAL GEL, 0.75% [Concomitant]
     Indication: ROSACEA
     Dosage: 0.75%
     Route: 061
     Dates: start: 2010
  4. REVISIONS INTELLISHADE BROAD-SPECTRUM SPF 45 [Concomitant]
     Indication: DRY SKIN PROPHYLAXIS
     Route: 061
  5. REVISIONS INTELLISHADE BROAD-SPECTRUM SPF 45 [Concomitant]
     Indication: PROPHYLAXIS AGAINST SOLAR RADIATION
  6. VANICREAM SOAP [Concomitant]
     Indication: THERAPEUTIC SKIN CARE TOPICAL

REACTIONS (6)
  - Rebound effect [Recovered/Resolved]
  - Condition aggravated [Recovered/Resolved]
  - Feeling hot [Recovered/Resolved]
  - Skin burning sensation [Recovered/Resolved]
  - Erythema [Recovered/Resolved]
  - Off label use [Recovered/Resolved]
